FAERS Safety Report 5682398-X (Version None)
Quarter: 2008Q1

REPORT INFORMATION
  Report Type: 
  Country: None (occurrence: None)
  Receive Date: 20080327
  Receipt Date: 20080317
  Transmission Date: 20080703
  Serious: Yes (Hospitalization)
  Sender: FDA-Public Use
  Company Number: US-ROCHE-553682

PATIENT
  Age: 75 Year
  Sex: Female

DRUGS (2)
  1. BONIVA [Suspect]
     Indication: OSTEOPOROSIS
     Route: 065
     Dates: start: 20060101, end: 20070701
  2. 1 CONCOMITANT DRUG [Concomitant]
     Dosage: DRUG: BLOOD PRESSURE MEDICATION (NOS)

REACTIONS (4)
  - CARDIAC DISORDER [None]
  - DEATH OF RELATIVE [None]
  - STOMACH DISCOMFORT [None]
  - STRESS [None]
